FAERS Safety Report 5261259-4 (Version None)
Quarter: 2007Q1

REPORT INFORMATION
  Report Type: 
  Country: None (occurrence: None)
  Receive Date: 20070309
  Receipt Date: 20070226
  Transmission Date: 20070707
  Serious: Yes (Other)
  Sender: FDA-Public Use
  Company Number: US-PFIZER INC-2007016311

PATIENT

DRUGS (3)
  1. CHANTIX [Suspect]
  2. INSULIN [Concomitant]
  3. THYROID TAB [Concomitant]

REACTIONS (1)
  - BLOOD THYROID STIMULATING HORMONE INCREASED [None]
